FAERS Safety Report 6456625-5 (Version None)
Quarter: 2009Q4

REPORT INFORMATION
  Report Type: 
  Country: None (occurrence: None)
  Receive Date: 20091125
  Receipt Date: 20091117
  Transmission Date: 20100525
  Serious: Yes (Other)
  Sender: FDA-Public Use
  Company Number: US-JNJFOC-20091105769

PATIENT
  Age: 34 Year
  Sex: Female

DRUGS (1)
  1. LEVAQUIN [Suspect]
     Indication: LABYRINTHITIS
     Route: 065

REACTIONS (4)
  - DRUG HYPERSENSITIVITY [None]
  - FEELING HOT [None]
  - PALPITATIONS [None]
  - TUNNEL VISION [None]
